FAERS Safety Report 6960484-1 (Version None)
Quarter: 2010Q3

REPORT INFORMATION
  Report Type: 
  Country: None (occurrence: None)
  Receive Date: 20100901
  Receipt Date: 20100818
  Transmission Date: 20110219
  Serious: Yes (Other)
  Sender: FDA-Public Use
  Company Number: US-JNJFOC-20100807060

PATIENT
  Sex: Female
  Weight: 92.99 kg

DRUGS (6)
  1. DURAGESIC-100 [Suspect]
     Indication: PAIN
     Route: 062
  2. DURAGESIC-100 [Suspect]
     Route: 062
  3. DURAGESIC-100 [Suspect]
     Route: 062
  4. SYNTHROID [Concomitant]
     Indication: HYPOTHYROIDISM
     Route: 048
  5. ESTROGEN [Concomitant]
     Indication: MENOPAUSAL SYMPTOMS
     Route: 062
  6. ALPHAGAN [Concomitant]
     Indication: GLAUCOMA
     Dosage: ONE DROP IN EACH EYE BOTH IN AM AND PM.
     Route: 031

REACTIONS (4)
  - DRUG INEFFECTIVE [None]
  - PRODUCT ADHESION ISSUE [None]
  - WEIGHT INCREASED [None]
  - WRONG TECHNIQUE IN DRUG USAGE PROCESS [None]
